FAERS Safety Report 16026578 (Version 4)
Quarter: 2019Q3

REPORT INFORMATION
  Report Type: Spontaneous
  Country: US (occurrence: US)
  Receive Date: 20190302
  Receipt Date: 20190913
  Transmission Date: 20191004
  Serious: Yes (Hospitalization, Other)
  Sender: FDA-Public Use
  Company Number: US-PRINSTON PHARMACEUTICAL INC.-2018PRN01284

PATIENT
  Sex: Female
  Weight: 58.96 kg

DRUGS (12)
  1. VALSARTAN. [Suspect]
     Active Substance: VALSARTAN
     Dosage: 160 MG
     Dates: start: 2018
  2. VALSARTAN. [Suspect]
     Active Substance: VALSARTAN
     Dosage: ^300 MG^
  3. PANTOPRAZOLE [Concomitant]
     Active Substance: PANTOPRAZOLE
  4. LEVOTHYROXINE. [Concomitant]
     Active Substance: LEVOTHYROXINE
     Dosage: 80 MG
  5. LEVOTHYROXINE. [Concomitant]
     Active Substance: LEVOTHYROXINE
     Dosage: 75 MG
  6. VALSARTAN. [Suspect]
     Active Substance: VALSARTAN
     Dosage: UNK
     Dates: start: 201607
  7. LEVOTHYROXINE. [Concomitant]
     Active Substance: LEVOTHYROXINE
     Dosage: 75 MG
  8. LOSARTAN POTASSIUM. [Suspect]
     Active Substance: LOSARTAN POTASSIUM
     Dosage: UNK
     Dates: start: 20180910, end: 201812
  9. VALSARTAN. [Suspect]
     Active Substance: VALSARTAN
     Indication: BLOOD PRESSURE ABNORMAL
     Dosage: 160 MG, 1X/DAY
     Route: 048
     Dates: end: 2018
  10. VALSARTAN (QUALITEST) [Suspect]
     Active Substance: VALSARTAN
     Dosage: UNK
     Dates: start: 201906
  11. AMLODIPINE [Concomitant]
     Active Substance: AMLODIPINE BESYLATE
  12. LOSARTAN (TORRENT) [Concomitant]
     Active Substance: LOSARTAN

REACTIONS (18)
  - Myocardial infarction [Unknown]
  - Blood pressure decreased [Recovered/Resolved]
  - Diarrhoea [Recovered/Resolved]
  - Vomiting [Recovering/Resolving]
  - Memory impairment [Unknown]
  - Asthenia [Recovered/Resolved]
  - Abdominal pain upper [Recovering/Resolving]
  - Dyspepsia [Recovering/Resolving]
  - Rectal haemorrhage [Not Recovered/Not Resolved]
  - Skin burning sensation [Recovered/Resolved]
  - Eye pruritus [Recovering/Resolving]
  - Fatigue [Recovered/Resolved]
  - Blood potassium increased [Unknown]
  - Dizziness [Recovering/Resolving]
  - Unevaluable event [Unknown]
  - Rash pruritic [Recovered/Resolved]
  - Recalled product administered [Recovered/Resolved]
  - Frequent bowel movements [Recovering/Resolving]

NARRATIVE: CASE EVENT DATE: 2017
